FAERS Safety Report 19233500 (Version 2)
Quarter: 2021Q2

REPORT INFORMATION
  Report Type: Spontaneous
  Country: FR (occurrence: FR)
  Receive Date: 20210507
  Receipt Date: 20210511
  Transmission Date: 20210717
  Serious: Yes (Other)
  Sender: FDA-Public Use
  Company Number: NVSC2021FR100830

PATIENT
  Age: 21 Year
  Sex: Female

DRUGS (3)
  1. VALIUM [Concomitant]
     Active Substance: DIAZEPAM
     Indication: PRODUCT USED FOR UNKNOWN INDICATION
     Dosage: 15 MG
     Route: 065
  2. TEGRETOL [Suspect]
     Active Substance: CARBAMAZEPINE
     Indication: AFFECTIVE DISORDER
     Dosage: 400 MG, QD (AROUND 2016/2017)
     Route: 065
  3. TEGRETOL [Suspect]
     Active Substance: CARBAMAZEPINE
     Dosage: 600 MG, QD (STOPPED AROUND 19 APR 2021)
     Route: 065
     Dates: start: 2020, end: 20210419

REACTIONS (18)
  - Extrasystoles [Recovering/Resolving]
  - Product dose omission issue [Unknown]
  - Amnesia [Not Recovered/Not Resolved]
  - Speech disorder [Not Recovered/Not Resolved]
  - Dyspnoea exertional [Unknown]
  - Visual impairment [Recovered/Resolved]
  - Hypoacusis [Unknown]
  - Anaemia [Unknown]
  - Tachycardia [Unknown]
  - Ear disorder [Recovered/Resolved]
  - Hypothyroidism [Recovered/Resolved]
  - Hypoacusis [Recovered/Resolved]
  - Galactorrhoea [Recovering/Resolving]
  - Visual impairment [Unknown]
  - Blood iron abnormal [Unknown]
  - Bradycardia [Recovering/Resolving]
  - Supraventricular extrasystoles [Unknown]
  - Dyspnoea [Recovering/Resolving]

NARRATIVE: CASE EVENT DATE: 2020
